FAERS Safety Report 6034578-1 (Version None)
Quarter: 2009Q1

REPORT INFORMATION
  Report Type: 
  Country: None (occurrence: None)
  Receive Date: 20090112
  Receipt Date: 20090105
  Transmission Date: 20090719
  Serious: Yes (Death)
  Sender: FDA-Public Use
  Company Number: JP-PFIZER INC-2009152442

PATIENT

DRUGS (14)
  1. AZULFIDINE [Suspect]
     Dosage: UNK
     Route: 048
     Dates: start: 20080705, end: 20080818
  2. CRAVIT [Suspect]
     Dosage: UNK
     Dates: start: 20080822
  3. ALLOZYM [Suspect]
     Indication: HYPERURICAEMIA
     Dosage: UNK
     Route: 048
     Dates: start: 20080705, end: 20080818
  4. LOXOPROFEN SODIUM [Suspect]
     Indication: ARTHRALGIA
     Dosage: UNK
     Route: 048
     Dates: start: 20080705, end: 20080818
  5. JUVELA NICOTINATE [Concomitant]
     Route: 048
  6. CYANOCOBALAMIN [Concomitant]
     Route: 048
  7. NORVASC [Concomitant]
     Route: 048
  8. BLOPRESS [Concomitant]
     Route: 048
  9. LOSARTAN POTASSIUM AND HYDROCHLOROTHIAZIDE [Concomitant]
     Route: 048
  10. BEZATOL - SLOW RELEASE [Concomitant]
     Route: 048
  11. ALMARL [Concomitant]
     Route: 048
  12. PHELLOBERIN A [Concomitant]
     Route: 048
  13. LOPEMIN [Concomitant]
     Route: 048
  14. MUCOSTA [Concomitant]
     Route: 048
     Dates: start: 20080705, end: 20080818

REACTIONS (3)
  - ANOREXIA [None]
  - DIARRHOEA [None]
  - GRANULOCYTOPENIA [None]
